FAERS Safety Report 5933716-6 (Version None)
Quarter: 2008Q4

REPORT INFORMATION
  Report Type: 
  Country: None (occurrence: None)
  Receive Date: 20081029
  Receipt Date: 20081022
  Transmission Date: 20090506
  Serious: Yes (Other)
  Sender: FDA-Public Use
  Company Number: JP-BRISTOL-MYERS SQUIBB COMPANY-14069801

PATIENT

DRUGS (1)
  1. KENACORT [Suspect]
     Indication: SEASONAL ALLERGY
     Dosage: ALSO HAD INTRAMUSCULAR INJECTION ON 28-MAR-2005.
     Route: 030
     Dates: start: 20050409

REACTIONS (8)
  - ANAPHYLACTIC SHOCK [None]
  - ANXIETY DISORDER [None]
  - CEREBROVASCULAR ACCIDENT [None]
  - CHEST PAIN [None]
  - CHORIORETINAL DISORDER [None]
  - FEAR OF DEATH [None]
  - MYOCARDIAL INFARCTION [None]
  - TINNITUS [None]
